FAERS Safety Report 5940653-X (Version None)
Quarter: 2008Q4

REPORT INFORMATION
  Report Type: 
  Country: None (occurrence: None)
  Receive Date: 20081104
  Receipt Date: 20081030
  Transmission Date: 20090506
  Serious: Yes (Other)
  Sender: FDA-Public Use
  Company Number: US-ASTRAZENECA-2007UW01967

PATIENT
  Age: 643 Month
  Sex: Male

DRUGS (1)
  1. SEROQUEL [Suspect]
     Indication: BIPOLAR DISORDER
     Route: 048
     Dates: start: 20031101, end: 20041001

REACTIONS (2)
  - TRIGEMINAL NEURALGIA [None]
  - TYPE 2 DIABETES MELLITUS [None]
